FAERS Safety Report 9962273 (Version 1)
Quarter: 2014Q1

REPORT INFORMATION
  Report Type: Report from Study
  Country: US (occurrence: US)
  Receive Date: 20140305
  Receipt Date: 20140305
  Transmission Date: 20141002
  Serious: No
  Sender: FDA-Public Use
  Company Number: US-ABBVIE-13P-163-1116108-00

PATIENT
  Age: 36 Year
  Sex: Female

DRUGS (3)
  1. HUMIRA [Suspect]
     Indication: CROHN^S DISEASE
     Dates: start: 20130613, end: 20130613
  2. HUMIRA [Suspect]
     Dates: start: 20130627
  3. DEPO-PROVERA [Concomitant]
     Indication: CONTRACEPTION
     Dosage: EVERY 12 WEEKS
     Route: 050

REACTIONS (2)
  - Injection site pain [Not Recovered/Not Resolved]
  - Drug ineffective [Not Recovered/Not Resolved]
